FAERS Safety Report 8147191-7 (Version None)
Quarter: 2012Q1

REPORT INFORMATION
  Report Type: 
  Country: None (occurrence: None)
  Receive Date: 20120218
  Receipt Date: 20110120
  Transmission Date: 20120608
  Serious: Yes (Hospitalization)
  Sender: FDA-Public Use
  Company Number: US-ALLERGAN-1100916US

PATIENT
  Sex: Female

DRUGS (1)
  1. BOTULINUM TOXIN TYPE A [Suspect]
     Indication: NEUROGENIC BLADDER
     Dosage: UNK
     Dates: start: 20101214, end: 20101214

REACTIONS (4)
  - DRY MOUTH [None]
  - PYREXIA [None]
  - INFLUENZA LIKE ILLNESS [None]
  - NIGHT SWEATS [None]
